FAERS Safety Report 9402819 (Version 2)
Quarter: 2013Q3

REPORT INFORMATION
  Report Type: Spontaneous
  Country: JP (occurrence: JP)
  Receive Date: 20130716
  Receipt Date: 20130801
  Transmission Date: 20140515
  Serious: Yes (Hospitalization)
  Sender: FDA-Public Use
  Company Number: JP-UCBSA-090546

PATIENT
  Age: 34 Year
  Sex: Male
  Weight: 60 kg

DRUGS (6)
  1. E KEPPRA [Suspect]
     Indication: EPILEPSY
     Route: 048
     Dates: start: 20130521, end: 20130528
  2. E KEPPRA [Suspect]
     Indication: EPILEPSY
     Route: 048
     Dates: start: 20130528, end: 2013
  3. E KEPPRA [Suspect]
     Indication: EPILEPSY
     Route: 048
     Dates: start: 20130514, end: 20130520
  4. TEGRETOL [Concomitant]
     Indication: EPILEPSY
     Dosage: DAILY DOSE: 100 MG
     Route: 048
     Dates: start: 20130514, end: 20130601
  5. HEPARIN [Concomitant]
     Dosage: DOSE: I AMPULE
  6. DIAZEPAM [Concomitant]

REACTIONS (3)
  - Memory impairment [Recovering/Resolving]
  - Agitation [Recovering/Resolving]
  - Disinhibition [Recovering/Resolving]
